FAERS Safety Report 7558443-3 (Version None)
Quarter: 2011Q2

REPORT INFORMATION
  Report Type: 
  Country: None (occurrence: None)
  Receive Date: 20110620
  Receipt Date: 20110609
  Transmission Date: 20111010
  Serious: Yes (Hospitalization, Other)
  Sender: FDA-Public Use
  Company Number: US-ASTRAZENECA-2011SE33692

PATIENT
  Age: 22727 Day
  Sex: Male
  Weight: 104.3 kg

DRUGS (10)
  1. PLAVIX [Concomitant]
     Indication: CORONARY ARTERY DISEASE
  2. POTASSIUM [Concomitant]
  3. TEGRETOL [Concomitant]
  4. ZETIA [Concomitant]
     Indication: HYPERLIPIDAEMIA
  5. NITROGLYCERIN [Concomitant]
     Dosage: AS REQUIRED
  6. CRESTOR [Suspect]
     Indication: HYPERLIPIDAEMIA
     Route: 048
     Dates: start: 20101001
  7. DILANTIN [Concomitant]
  8. ASPIRIN [Concomitant]
     Indication: HYPERLIPIDAEMIA
  9. CRESTOR [Suspect]
     Indication: HYPERCHOLESTEROLAEMIA
     Route: 048
     Dates: start: 20101001
  10. FOLIC ACID [Concomitant]

REACTIONS (19)
  - ATRIAL FIBRILLATION [None]
  - CARDIAC FAILURE CONGESTIVE [None]
  - CONDITION AGGRAVATED [None]
  - GASTROOESOPHAGEAL REFLUX DISEASE [None]
  - RALES [None]
  - HEPATIC ENZYME INCREASED [None]
  - STARVATION [None]
  - HYPERTENSION [None]
  - ABDOMINAL PAIN [None]
  - PULMONARY OEDEMA [None]
  - POLLAKIURIA [None]
  - BEDRIDDEN [None]
  - PAIN [None]
  - OEDEMA [None]
  - CARDIAC ENZYMES INCREASED [None]
  - EPILEPSY [None]
  - FEELING ABNORMAL [None]
  - NEUROPATHY PERIPHERAL [None]
  - DIABETES MELLITUS [None]
